FAERS Safety Report 23995261 (Version 5)
Quarter: 2024Q3

REPORT INFORMATION
  Report Type: Spontaneous
  Country: US (occurrence: US)
  Receive Date: 20240620
  Receipt Date: 20240919
  Transmission Date: 20241016
  Serious: Yes (Other)
  Sender: PFIZER
  Company Number: US-PFIZER INC-PV202400079264

PATIENT
  Age: 81 Year
  Sex: Female
  Weight: 97.07 kg

DRUGS (1)
  1. PREMARIN [Suspect]
     Active Substance: ESTROGENS, CONJUGATED
     Dosage: UNK UNK, DAILY (APPLY TOPICALLY NIGHTLY TO VULVA FOR 30 DAYS)
     Route: 067

REACTIONS (2)
  - Vaginal infection [Not Recovered/Not Resolved]
  - Off label use [Unknown]
